FAERS Safety Report 6839286-2 (Version None)
Quarter: 2010Q3

REPORT INFORMATION
  Report Type: 
  Country: None (occurrence: None)
  Receive Date: 20100714
  Receipt Date: 20100510
  Transmission Date: 20110219
  Serious: No
  Sender: FDA-Public Use
  Company Number: US-KINGPHARMUSA00001-K201000568

PATIENT
  Sex: Female
  Weight: 56.689 kg

DRUGS (1)
  1. BICILLIN L-A [Suspect]
     Indication: LYME DISEASE
     Dosage: 2400000 IU, SINGLE
     Route: 030
     Dates: start: 20100506, end: 20100506

REACTIONS (5)
  - INFLUENZA LIKE ILLNESS [None]
  - PAIN [None]
  - PYREXIA [None]
  - RASH [None]
  - VOMITING [None]
